FAERS Safety Report 15879952 (Version 1)
Quarter: 2019Q1

REPORT INFORMATION
  Report Type: Spontaneous
  Country: ES (occurrence: ES)
  Receive Date: 20190128
  Receipt Date: 20190128
  Transmission Date: 20190417
  Serious: Yes (Other)
  Sender: FDA-Public Use
  Company Number: PHHY2019ES012570

PATIENT
  Age: 55 Year
  Sex: Female

DRUGS (1)
  1. IBUPROFEN. [Suspect]
     Active Substance: IBUPROFEN
     Indication: PRODUCT USED FOR UNKNOWN INDICATION
     Dosage: 600 MG, UNK
     Route: 065

REACTIONS (6)
  - Mast cell activation syndrome [Unknown]
  - Drug intolerance [Unknown]
  - Bronchospasm [Unknown]
  - Allergic respiratory disease [Unknown]
  - Urticaria [Unknown]
  - Therapeutic product cross-reactivity [Unknown]
